FAERS Safety Report 18507482 (Version 3)
Quarter: 2021Q2

REPORT INFORMATION
  Report Type: Report from Study
  Country: CO (occurrence: CO)
  Receive Date: 20201116
  Receipt Date: 20210430
  Transmission Date: 20210717
  Serious: Yes (Other)
  Sender: FDA-Public Use
  Company Number: CO-TAKEDA-2020TUS037560

PATIENT
  Age: 28 Year
  Sex: Male
  Weight: 60 kg

DRUGS (1)
  1. VEDOLIZUMAB [Suspect]
     Active Substance: VEDOLIZUMAB
     Indication: CROHN^S DISEASE
     Dosage: 300 MILLIGRAM, Q4WEEKS
     Route: 042
     Dates: start: 20191217

REACTIONS (5)
  - Injection site pain [Recovered/Resolved]
  - Crohn^s disease [Not Recovered/Not Resolved]
  - Off label use [Unknown]
  - Weight decreased [Unknown]
  - Weight increased [Recovered/Resolved]

NARRATIVE: CASE EVENT DATE: 20191217
